FAERS Safety Report 7679589-5 (Version None)
Quarter: 2011Q3

REPORT INFORMATION
  Report Type: 
  Country: None (occurrence: None)
  Receive Date: 20110812
  Receipt Date: 20110809
  Transmission Date: 20111222
  Serious: Yes (Other)
  Sender: FDA-Public Use
  Company Number: AR-AMGEN-ARGSP2011038572

PATIENT
  Age: 62 Year
  Sex: Male
  Weight: 66 kg

DRUGS (1)
  1. ENBREL [Suspect]
     Indication: ANKYLOSING SPONDYLITIS
     Dosage: 50 MG, EVERY 10 DAYS
     Route: 058
     Dates: start: 20061128, end: 20110701

REACTIONS (1)
  - KERATITIS [None]
